FAERS Safety Report 23585062 (Version 3)
Quarter: 2024Q3

REPORT INFORMATION
  Report Type: Spontaneous
  Country: US (occurrence: US)
  Receive Date: 20240301
  Receipt Date: 20240702
  Transmission Date: 20241016
  Serious: No
  Sender: GLAXOSMITHKLINE
  Company Number: US-GSKCCFUS-Case-01943202_AE-107990

PATIENT
  Sex: Female

DRUGS (2)
  1. NUCALA [Suspect]
     Active Substance: MEPOLIZUMAB
     Indication: Product used for unknown indication
     Dosage: UNK
     Dates: start: 20240131
  2. NUCALA [Suspect]
     Active Substance: MEPOLIZUMAB
     Indication: NSAID exacerbated respiratory disease
     Dosage: 100 MG, Q4W
     Dates: start: 20240131

REACTIONS (13)
  - Headache [Recovered/Resolved]
  - Dizziness [Unknown]
  - Food allergy [Unknown]
  - Oropharyngeal pain [Recovering/Resolving]
  - Fatigue [Not Recovered/Not Resolved]
  - Abdominal discomfort [Recovered/Resolved]
  - Diarrhoea [Unknown]
  - Depression [Unknown]
  - Asthenia [Unknown]
  - Exposure via skin contact [Unknown]
  - Wrong technique in device usage process [Unknown]
  - Accidental exposure to product [Unknown]
  - Product complaint [Unknown]
